FAERS Safety Report 10045921 (Version 1)
Quarter: 2014Q1

REPORT INFORMATION
  Report Type: Spontaneous
  Country: US (occurrence: US)
  Receive Date: 20140329
  Receipt Date: 20140329
  Transmission Date: 20141002
  Serious: No
  Sender: FDA-Public Use
  Company Number: US-TEVA-472360USA

PATIENT
  Age: 18 Year
  Sex: Female
  Weight: 51.3 kg

DRUGS (2)
  1. PLAN B ONE-STEP [Suspect]
     Indication: POST COITAL CONTRACEPTION
     Dosage: 1.5 MILLIGRAM DAILY;
     Route: 048
     Dates: start: 20140308, end: 20140308
  2. MONONESSA [Concomitant]
     Indication: CONTRACEPTION

REACTIONS (4)
  - Urinary tract infection [Not Recovered/Not Resolved]
  - Blood urine present [Not Recovered/Not Resolved]
  - Pollakiuria [Not Recovered/Not Resolved]
  - Menstruation irregular [Not Recovered/Not Resolved]
